FAERS Safety Report 8575656-2 (Version None)
Quarter: 2012Q3

REPORT INFORMATION
  Report Type: 
  Country: None (occurrence: None)
  Receive Date: 20120807
  Receipt Date: 20120731
  Transmission Date: 20120928
  Serious: Yes (Hospitalization, Other)
  Sender: FDA-Public Use
  Company Number: JP-PFIZER INC-2012166866

PATIENT

DRUGS (1)
  1. AZULFIDINE [Suspect]
     Dosage: 1000 MG, UNK
     Route: 048

REACTIONS (3)
  - RASH [None]
  - MALAISE [None]
  - PYREXIA [None]
